FAERS Safety Report 20124767 (Version 1)
Quarter: 2021Q4

REPORT INFORMATION
  Report Type: Spontaneous
  Country: KW (occurrence: KW)
  Receive Date: 20211129
  Receipt Date: 20211129
  Transmission Date: 20220303
  Serious: Yes (Hospitalization)
  Sender: FDA-Public Use
  Company Number: KW-LUPIN PHARMACEUTICALS INC.-2021-23219

PATIENT
  Age: 8 Year
  Sex: Female

DRUGS (3)
  1. FLUOXETINE [Interacting]
     Active Substance: FLUOXETINE HYDROCHLORIDE
     Indication: Anxiety
     Dosage: 40 MILLIGRAM, QD, RECEIVED FOR OVER 8 WEEKS
     Route: 065
  2. DULOXETINE [Interacting]
     Active Substance: DULOXETINE
     Indication: Anxiety
     Dosage: 30 MILLIGRAM, QD
     Route: 065
  3. DULOXETINE [Interacting]
     Active Substance: DULOXETINE
     Dosage: 60 MILLIGRAM, QD, DOSE WAS TITRATED FROM 30MG/DAY TO 60MG/DAY
     Route: 065

REACTIONS (5)
  - Supraventricular tachyarrhythmia [Recovered/Resolved]
  - Drug interaction [Unknown]
  - Nausea [Recovered/Resolved]
  - Drug ineffective for unapproved indication [Unknown]
  - Off label use [Unknown]
